FAERS Safety Report 24667383 (Version 1)
Quarter: 2024Q4

REPORT INFORMATION
  Report Type: Spontaneous
  Country: US (occurrence: US)
  Receive Date: 20241126
  Receipt Date: 20241126
  Transmission Date: 20250115
  Serious: Yes (Hospitalization)
  Sender: NEPHRON STERILE COMPOUNDING CENTER, LLC (NSCC), WEST COLUMBIA, SC
  Company Number: US-Nephron Sterile Compounding Center-2166049

PATIENT
  Age: 40 Year
  Sex: Male
  Weight: 98 kg

DRUGS (3)
  1. ARGININE\LYSINE [Suspect]
     Active Substance: ARGININE\LYSINE
     Dates: start: 20241104
  2. LUTATHERA [Concomitant]
     Active Substance: LUTETIUM OXODOTREOTIDE LU-177
  3. ZOFRAN [Concomitant]
     Active Substance: ONDANSETRON HYDROCHLORIDE

REACTIONS (1)
  - Therapeutic response unexpected [Recovered/Resolved]

NARRATIVE: CASE EVENT DATE: 20241105
